FAERS Safety Report 6072210-1 (Version None)
Quarter: 2009Q1

REPORT INFORMATION
  Report Type: 
  Country: None (occurrence: None)
  Receive Date: 20090210
  Receipt Date: 20090204
  Transmission Date: 20090719
  Serious: Yes (Other)
  Sender: FDA-Public Use
  Company Number: US-ASTRAZENECA-2009UW03367

PATIENT
  Age: 63 Year
  Sex: Female

DRUGS (5)
  1. ARIMIDEX [Suspect]
     Indication: BREAST CANCER STAGE II
     Route: 048
     Dates: start: 20080201
  2. GENERIC PLENDIL [Concomitant]
  3. GENERIC PEPCID [Concomitant]
  4. ATENOLOL [Concomitant]
  5. COZAAR [Concomitant]

REACTIONS (2)
  - HUMAN PAPILLOMA VIRUS TEST POSITIVE [None]
  - UTERINE CERVIX STENOSIS [None]
